FAERS Safety Report 17956156 (Version 2)
Quarter: 2020Q3

REPORT INFORMATION
  Report Type: Spontaneous
  Country: US (occurrence: US)
  Receive Date: 20200629
  Receipt Date: 20200911
  Transmission Date: 20201103
  Serious: No
  Sender: FDA-Public Use
  Company Number: US-PFIZER INC-2020125883

PATIENT
  Age: 79 Year
  Sex: Male

DRUGS (1)
  1. LYRICA [Suspect]
     Active Substance: PREGABALIN
     Indication: SPINAL STENOSIS
     Dosage: 50 MG, 4X/DAY
     Route: 048

REACTIONS (2)
  - Gait disturbance [Unknown]
  - Intentional dose omission [Unknown]
